FAERS Safety Report 9794549 (Version 2)
Quarter: 2014Q1

REPORT INFORMATION
  Report Type: Spontaneous
  Country: IT (occurrence: IT)
  Receive Date: 20140102
  Receipt Date: 20140210
  Transmission Date: 20141002
  Serious: Yes (Hospitalization)
  Sender: FDA-Public Use
  Company Number: IT-PFIZER INC-2014000298

PATIENT
  Age: 84 Year
  Sex: Female

DRUGS (10)
  1. TENORETIC [Suspect]
     Dosage: 50 MG/ 12.5MG , DAILY
     Route: 048
     Dates: start: 20130101, end: 20130329
  2. PANTORC [Suspect]
     Dosage: 20 MG, UNK
     Route: 048
  3. NORVASC [Suspect]
     Dosage: 10 MG, UNK
     Route: 048
  4. TORVAST [Suspect]
     Dosage: 20 MG, UNK
     Route: 048
  5. CARDIOASPIRIN [Suspect]
     Dosage: 100 MG, UNK
     Route: 048
  6. SPIROFUR [Suspect]
     Dosage: 50 MG/ 20 MG, DAILY
     Route: 048
     Dates: start: 20130101, end: 20130329
  7. COTAREG [Suspect]
     Indication: HYPERTENSION
     Dosage: 320 MG/ 25 MG, DAILY
     Route: 048
     Dates: start: 20130101, end: 20130329
  8. ZYLORIC [Suspect]
     Dosage: 300 MG, UNK
     Route: 048
  9. LASIX [Suspect]
     Dosage: 25 MG, UNK
     Route: 048
  10. TAPAZOLE [Suspect]
     Dosage: 5 MG STRENGTH TABLET
     Route: 048

REACTIONS (2)
  - Asthenia [Recovering/Resolving]
  - Fatigue [Recovering/Resolving]
